FAERS Safety Report 4668622-0 (Version None)
Quarter: 2005Q2

REPORT INFORMATION
  Report Type: 
  Country: None (occurrence: None)
  Receive Date: 20050519
  Receipt Date: 20050509
  Transmission Date: 20051028
  Serious: Yes (Hospitalization, Other)
  Sender: FDA-Public Use
  Company Number: 2005060708

PATIENT
  Age: 49 Year
  Sex: Female
  Weight: 127.0072 kg

DRUGS (8)
  1. BEXTRA [Suspect]
     Indication: ARTHRITIS
     Dosage: 20 MG (20 MG, 1 IN 1 D), ORAL
     Route: 048
     Dates: start: 20030401
  2. TOPROL (METOPROLOL) [Concomitant]
  3. PLAVIX [Concomitant]
  4. NEXIUM [Concomitant]
  5. VASOTEC [Concomitant]
  6. HYRDOCHLOROTHIAZIDE (HYDROCHLOROTHIAZIDE) [Concomitant]
  7. ZOLOFT [Concomitant]
  8. ZOCOR [Concomitant]

REACTIONS (13)
  - DILATATION ATRIAL [None]
  - ELECTROCARDIOGRAM POOR R-WAVE PROGRESSION [None]
  - ELECTROCARDIOGRAM ST-T CHANGE [None]
  - ENDOMETRIOSIS [None]
  - MYOCARDIAL INFARCTION [None]
  - PLANTAR FASCIITIS [None]
  - POST PROCEDURAL COMPLICATION [None]
  - SCAN MYOCARDIAL PERFUSION ABNORMAL [None]
  - SLEEP APNOEA SYNDROME [None]
  - THERAPEUTIC RESPONSE DECREASED [None]
  - VASCULAR RUPTURE [None]
  - VENTRICULAR DYSFUNCTION [None]
  - WEIGHT INCREASED [None]
